FAERS Safety Report 24777827 (Version 1)
Quarter: 2024Q4

REPORT INFORMATION
  Report Type: Report from Study
  Country: EG (occurrence: EG)
  Receive Date: 20241226
  Receipt Date: 20241226
  Transmission Date: 20250115
  Serious: Yes (Other)
  Sender: SANDOZ
  Company Number: EG-SANDOZ-SDZ2024EG105313

PATIENT
  Age: 6 Year
  Sex: Female

DRUGS (1)
  1. OMNITROPE [Suspect]
     Active Substance: SOMATROPIN
     Indication: Small for dates baby
     Dosage: UNK
     Route: 058
     Dates: start: 20211011, end: 20240921

REACTIONS (4)
  - Seizure [Unknown]
  - Device mechanical issue [Unknown]
  - Device leakage [Unknown]
  - Product substitution [Unknown]

NARRATIVE: CASE EVENT DATE: 20240921
